FAERS Safety Report 9558884 (Version 4)
Quarter: 2013Q4

REPORT INFORMATION
  Report Type: Spontaneous
  Country: JP (occurrence: JP)
  Receive Date: 20130927
  Receipt Date: 20131121
  Transmission Date: 20140711
  Serious: Yes (Other)
  Sender: FDA-Public Use
  Company Number: JP-PFIZER INC-2013275229

PATIENT
  Age: 57 Year
  Sex: Male
  Weight: 75 kg

DRUGS (21)
  1. PREGABALIN [Suspect]
     Indication: BACK PAIN
     Dosage: 225 MG/D
     Route: 048
  2. PREGABALIN [Interacting]
     Indication: MUSCULOSKELETAL PAIN
     Dosage: 300 MG/D
     Route: 048
  3. PREGABALIN [Interacting]
     Dosage: 375 MG/D
     Route: 048
  4. PREGABALIN [Interacting]
     Dosage: 450 MG/DAY
     Route: 048
     Dates: start: 20101016
  5. CYMBALTA [Interacting]
     Indication: MAJOR DEPRESSION
     Dosage: 20 MG, 1X/DAY
     Route: 048
     Dates: start: 20110920
  6. CYMBALTA [Interacting]
     Indication: PAIN
     Dosage: 40 MG/D
     Route: 048
     Dates: start: 20111004
  7. CYMBALTA [Interacting]
     Dosage: 20 MG, 1X/DAY
     Route: 048
     Dates: start: 20111018, end: 20111101
  8. AMITRIPTYLINE [Interacting]
     Dosage: 50 MG/D
     Route: 048
  9. ROHYPNOL [Concomitant]
     Indication: INSOMNIA
     Dosage: 4 MG, 1X/DAY
     Route: 048
     Dates: start: 20081105
  10. SEROQUEL [Concomitant]
     Indication: INSOMNIA
     Dosage: 50 MG/D
     Route: 048
     Dates: start: 20091126
  11. SEROQUEL [Concomitant]
     Dosage: 100 MG, 1X/DAY
     Route: 048
     Dates: start: 20111018
  12. SEROQUEL [Concomitant]
     Dosage: 50 MG, 1X/DAY
     Route: 048
     Dates: start: 20111101
  13. REFLEX (MIRTAZAPINE) [Interacting]
     Indication: DEPRESSION
     Dosage: 15 MG, DAILY
     Route: 048
  14. REFLEX (MIRTAZAPINE) [Interacting]
     Dosage: 30 MG/D
     Route: 048
  15. REFLEX (MIRTAZAPINE) [Interacting]
     Dosage: 45 MG/D
     Route: 048
     Dates: start: 20110208
  16. BIOTIN [Concomitant]
     Dosage: UNK
  17. OLOPATADINE [Concomitant]
     Dosage: UNK
  18. MAXACALCITOL [Concomitant]
     Dosage: UNK
  19. LULICONAZOLE [Concomitant]
     Dosage: UNK
  20. BETAMETHASONE [Concomitant]
     Dosage: UNK
  21. ALENDRONATE SODIUM [Concomitant]
     Dosage: UNK

REACTIONS (2)
  - Drug interaction [Unknown]
  - Hallucination, visual [Recovered/Resolved]
